FAERS Safety Report 5776019-5 (Version None)
Quarter: 2008Q2

REPORT INFORMATION
  Report Type: 
  Country: None (occurrence: None)
  Receive Date: 20080613
  Receipt Date: 20080529
  Transmission Date: 20081010
  Serious: Yes (Other)
  Sender: FDA-Public Use
  Company Number: A-US2008-20803

PATIENT
  Age: 31 Year
  Sex: Female
  Weight: 50.3 kg

DRUGS (3)
  1. TRACLEER [Suspect]
     Indication: PULMONARY HYPERTENSION
     Dosage: 62.5 MG, BID, ORAL, 125 MG, BID
     Route: 048
     Dates: start: 20070301, end: 20080312
  2. TRACLEER [Suspect]
     Indication: PULMONARY HYPERTENSION
     Dosage: 62.5 MG, BID, ORAL, 125 MG, BID
     Route: 048
     Dates: start: 20080513
  3. SILDENAFIL CITRATE [Concomitant]

REACTIONS (3)
  - ABORTION INDUCED [None]
  - MATERNAL DRUGS AFFECTING FOETUS [None]
  - PREGNANCY [None]
